FAERS Safety Report 23184603 (Version 1)
Quarter: 2023Q4

REPORT INFORMATION
  Report Type: Spontaneous
  Country: DE (occurrence: DE)
  Receive Date: 20231115
  Receipt Date: 20231115
  Transmission Date: 20240110
  Serious: Yes (Life-Threatening, Other)
  Sender: FDA-Public Use
  Company Number: DE-DCGMA-22199713

PATIENT
  Age: 62 Year
  Sex: Male
  Weight: 80 kg

DRUGS (5)
  1. CAPECITABINE [Suspect]
     Active Substance: CAPECITABINE
     Indication: Colorectal adenocarcinoma
     Dosage: FREQ: 1-0-1?DAILY DOSE: 4000 MILLIGRAM
     Route: 048
     Dates: start: 20221007, end: 20221019
  2. MCP [Concomitant]
     Active Substance: METOCLOPRAMIDE HYDROCHLORIDE
     Route: 048
  3. FAMOTIDINE [Concomitant]
     Active Substance: FAMOTIDINE
     Dosage: DAILY DOSE: 40 MILLIGRAM
  4. LOPERAMIDE [Concomitant]
     Active Substance: LOPERAMIDE
  5. ONDANSETRON [Concomitant]
     Active Substance: ONDANSETRON

REACTIONS (2)
  - Ventricular fibrillation [Recovering/Resolving]
  - Resuscitation [Recovering/Resolving]

NARRATIVE: CASE EVENT DATE: 20221019
